FAERS Safety Report 25803269 (Version 1)
Quarter: 2025Q3

REPORT INFORMATION
  Report Type: Spontaneous
  Country: US (occurrence: US)
  Receive Date: 20250915
  Receipt Date: 20250915
  Transmission Date: 20251020
  Serious: Yes (Other)
  Sender: TEVA
  Company Number: US-TEVA-VS-3371447

PATIENT
  Age: 10 Year
  Sex: Male

DRUGS (1)
  1. GUANFACINE [Suspect]
     Active Substance: GUANFACINE
     Indication: Sleep disorder
     Route: 065

REACTIONS (10)
  - Foot fracture [Unknown]
  - Self-destructive behaviour [Unknown]
  - Product use in unapproved indication [Unknown]
  - Stereotypy [Unknown]
  - Breath holding [Unknown]
  - Patient elopement [Unknown]
  - Therapeutic product effect incomplete [Unknown]
  - Anal incontinence [Unknown]
  - Urinary incontinence [Unknown]
  - Perseveration [Unknown]
